FAERS Safety Report 9407378 (Version 1)
Quarter: 2013Q3

REPORT INFORMATION
  Report Type: Spontaneous
  Country: US (occurrence: FR)
  Receive Date: 20130718
  Receipt Date: 20130718
  Transmission Date: 20140515
  Serious: Yes (Hospitalization)
  Sender: FDA-Public Use
  Company Number: US-SANOFI-AVENTIS-2013SA071463

PATIENT
  Age: 66 Year
  Sex: Female

DRUGS (17)
  1. PRIMPERAN [Suspect]
     Indication: PREMEDICATION
     Route: 065
     Dates: start: 201208, end: 201212
  2. ARAVA [Suspect]
     Route: 065
  3. ARANESP [Suspect]
     Indication: ANAEMIA
     Route: 065
     Dates: start: 201210, end: 201212
  4. HERCEPTIN [Concomitant]
     Route: 065
     Dates: start: 20120820, end: 20121229
  5. TAXOL [Concomitant]
     Route: 065
  6. SOLUMEDROL [Concomitant]
     Indication: PREMEDICATION
     Route: 065
     Dates: start: 201208, end: 201212
  7. ONDANSETRON [Concomitant]
     Indication: PREMEDICATION
     Route: 065
     Dates: start: 201208, end: 201212
  8. SECTRAL [Concomitant]
     Route: 065
  9. MOPRAL [Concomitant]
     Route: 065
  10. CRESTOR [Concomitant]
     Route: 065
  11. CORDARONE [Concomitant]
     Route: 065
  12. LEVOTHYROX [Concomitant]
     Route: 065
  13. LASILIX [Concomitant]
     Route: 065
  14. PROXETINE [Concomitant]
     Route: 065
  15. KARDEGIC [Concomitant]
     Route: 065
  16. POLARAMINE [Concomitant]
     Indication: PREMEDICATION
     Route: 065
     Dates: start: 201212, end: 201212
  17. RANITIDINE [Concomitant]
     Indication: PREMEDICATION
     Route: 065
     Dates: end: 2012

REACTIONS (4)
  - Cardiac failure [Recovered/Resolved with Sequelae]
  - Bronchitis [Recovered/Resolved with Sequelae]
  - Congestive cardiomyopathy [Recovered/Resolved with Sequelae]
  - Aortic stenosis [Recovered/Resolved with Sequelae]
